FAERS Safety Report 5837842-1 (Version None)
Quarter: 2008Q3

REPORT INFORMATION
  Report Type: 
  Country: None (occurrence: None)
  Receive Date: 20080808
  Receipt Date: 20080103
  Transmission Date: 20090109
  Serious: No
  Sender: FDA-Public Use
  Company Number: A0701223A

PATIENT
  Age: 59 Year
  Sex: Male

DRUGS (3)
  1. PAXIL CR [Suspect]
     Indication: EMOTIONAL DISTRESS
     Dosage: 25MG PER DAY
     Route: 048
  2. ASPIRIN [Concomitant]
  3. VITAMIN [Concomitant]

REACTIONS (4)
  - ANXIETY [None]
  - DRUG INEFFECTIVE [None]
  - HANGOVER [None]
  - ILL-DEFINED DISORDER [None]
